FAERS Safety Report 8393191-1 (Version None)
Quarter: 2012Q2

REPORT INFORMATION
  Report Type: 
  Country: None (occurrence: None)
  Receive Date: 20120529
  Receipt Date: 20120523
  Transmission Date: 20120825
  Serious: No
  Sender: FDA-Public Use
  Company Number: US-ABBOTT-12P-163-0938421-00

PATIENT
  Sex: Male
  Weight: 105.33 kg

DRUGS (3)
  1. ANDROGEL [Suspect]
     Indication: BLOOD TESTOSTERONE DECREASED
     Dosage: 2 PUMPS DAILY
     Dates: start: 20120501
  2. MORPHINE [Concomitant]
     Indication: ROTATOR CUFF SYNDROME
  3. MORPHINE [Concomitant]
     Indication: BACK PAIN

REACTIONS (2)
  - ABDOMINAL PAIN UPPER [None]
  - HYPERHIDROSIS [None]
